FAERS Safety Report 4552860-1 (Version None)
Quarter: 2005Q1

REPORT INFORMATION
  Report Type: 
  Country: None (occurrence: None)
  Receive Date: 20050111
  Receipt Date: 20050111
  Transmission Date: 20050727
  Serious: No
  Sender: FDA-Public Use
  Company Number: None

PATIENT
  Age: 53 Year
  Sex: Male

DRUGS (1)
  1. SODIUM CHLORIDE 0.9% [Suspect]
     Indication: ERYTHEMA
     Dosage: 3ML
     Dates: start: 20050102

REACTIONS (3)
  - CONVULSION [None]
  - DYSPNOEA [None]
  - HYPOKINESIA [None]
